FAERS Safety Report 16415306 (Version 2)
Quarter: 2019Q2

REPORT INFORMATION
  Report Type: Other
  Country: US (occurrence: US)
  Receive Date: 20190611
  Receipt Date: 20190620
  Transmission Date: 20190711
  Serious: Yes (Other)
  Sender: FDA-Public Use
  Company Number: US-ACORDA-ACO_159211_2019

PATIENT
  Age: 74 Year
  Sex: Male

DRUGS (2)
  1. INBRIJA [Suspect]
     Active Substance: LEVODOPA
     Indication: ON AND OFF PHENOMENON
  2. INBRIJA [Suspect]
     Active Substance: LEVODOPA
     Indication: PARKINSON^S DISEASE
     Dosage: 84 MILLIGRAM UP TO FIVE TIMES PER DAY AS NEEDED
     Dates: start: 201905, end: 201906

REACTIONS (5)
  - Condition aggravated [Recovering/Resolving]
  - Gait disturbance [Not Recovered/Not Resolved]
  - Hypersensitivity [Recovering/Resolving]
  - Paralysis [Recovering/Resolving]
  - Hypokinesia [Recovering/Resolving]

NARRATIVE: CASE EVENT DATE: 201905
